FAERS Safety Report 7945229-0 (Version None)
Quarter: 2011Q4

REPORT INFORMATION
  Report Type: 
  Country: None (occurrence: None)
  Receive Date: 20111129
  Receipt Date: 20110613
  Transmission Date: 20120403
  Serious: No
  Sender: FDA-Public Use
  Company Number: US-GLAXOSMITHKLINE-A0931331A

PATIENT
  Sex: Male

DRUGS (2)
  1. CHOLESTOFF [Suspect]
  2. FLOVENT [Suspect]
     Indication: ASTHMA
     Route: 055

REACTIONS (4)
  - ABDOMINAL PAIN UPPER [None]
  - HEART RATE INCREASED [None]
  - VISION BLURRED [None]
  - HYPERTENSION [None]
